FAERS Safety Report 13482157 (Version 3)
Quarter: 2017Q2

REPORT INFORMATION
  Report Type: Spontaneous
  Country: RU (occurrence: RU)
  Receive Date: 20170426
  Receipt Date: 20170519
  Transmission Date: 20170830
  Serious: Yes (Other)
  Sender: FDA-Public Use
  Company Number: PHHY2017RU060454

PATIENT
  Sex: Female

DRUGS (1)
  1. MONTELAR (MONTELUKAST SODIUM) [Suspect]
     Active Substance: MONTELUKAST SODIUM
     Indication: PRODUCT USED FOR UNKNOWN INDICATION
     Dosage: 5 MG, QD
     Route: 048

REACTIONS (5)
  - Throat irritation [Recovered/Resolved]
  - Tonsillitis [Recovered/Resolved]
  - Swollen tongue [Recovered/Resolved]
  - Pharyngeal disorder [Recovered/Resolved]
  - Dysphagia [Recovered/Resolved]
